FAERS Safety Report 16812504 (Version 2)
Quarter: 2020Q1

REPORT INFORMATION
  Report Type: Spontaneous
  Country: US (occurrence: US)
  Receive Date: 20190916
  Receipt Date: 20200309
  Transmission Date: 20200409
  Serious: No
  Sender: FDA-Public Use
  Company Number: US-JNJFOC-20190820064

PATIENT
  Age: 58 Year
  Sex: Male

DRUGS (3)
  1. LAMICTAL [Concomitant]
     Active Substance: LAMOTRIGINE
  2. SPRAVATO [Suspect]
     Active Substance: ESKETAMINE
     Indication: MAJOR DEPRESSION
     Dates: start: 20190429
  3. TRINTELLIX [Concomitant]
     Active Substance: VORTIOXETINE HYDROBROMIDE
     Indication: MAJOR DEPRESSION

REACTIONS (1)
  - Dysgeusia [Recovered/Resolved]

NARRATIVE: CASE EVENT DATE: 201907
